FAERS Safety Report 18297542 (Version 1)
Quarter: 2020Q3

REPORT INFORMATION
  Report Type: Spontaneous
  Country: US (occurrence: US)
  Receive Date: 20200922
  Receipt Date: 20200922
  Transmission Date: 20201103
  Serious: No
  Sender: FDA-Public Use
  Company Number: US-AMARIN PHARMA, INC.-2019AMR000421

PATIENT
  Sex: Female

DRUGS (3)
  1. ULTRA VITE [Concomitant]
     Indication: EYE DISORDER
  2. VASCEPA [Suspect]
     Active Substance: ICOSAPENT ETHYL
     Indication: MINERAL SUPPLEMENTATION
     Route: 048
     Dates: start: 2017
  3. VASCEPA [Suspect]
     Active Substance: ICOSAPENT ETHYL
     Indication: BLOOD CHOLESTEROL ABNORMAL
     Route: 048
     Dates: start: 20191006

REACTIONS (2)
  - Underdose [Unknown]
  - Drug ineffective [Unknown]
